FAERS Safety Report 23226806 (Version 1)
Quarter: 2023Q4

REPORT INFORMATION
  Report Type: Spontaneous
  Country: AU (occurrence: AU)
  Receive Date: 20231124
  Receipt Date: 20231124
  Transmission Date: 20240110
  Serious: No
  Sender: FDA-Public Use
  Company Number: AU-009507513-2311AUS005924

PATIENT
  Age: 27 Year
  Sex: Female

DRUGS (1)
  1. LAGEVRIO [Suspect]
     Active Substance: MOLNUPIRAVIR
     Indication: COVID-19 treatment
     Dosage: 2 DOSAGE FORM, BID (400MG PER DAY)
     Route: 048

REACTIONS (1)
  - Product prescribing issue [Unknown]
